FAERS Safety Report 4344358-0 (Version None)
Quarter: 2004Q2

REPORT INFORMATION
  Report Type: 
  Country: None (occurrence: None)
  Receive Date: 20040419
  Receipt Date: 20040406
  Transmission Date: 20050107
  Serious: Yes (Hospitalization, Other)
  Sender: FDA-Public Use
  Company Number: 2004204532CA

PATIENT
  Age: 75 Year
  Sex: Male
  Weight: 66.2 kg

DRUGS (11)
  1. ZYVOX [Suspect]
     Indication: STAPHYLOCOCCAL INFECTION
     Dosage: 600 MG, BID, UNK
     Dates: start: 20030131, end: 20030226
  2. METOPROLOL TARTRATE [Concomitant]
  3. FUROSEMIDE [Concomitant]
  4. NITROGLICERINA [Concomitant]
  5. ASPIRIN [Concomitant]
  6. LEVOTHYROXINE SODIUM [Concomitant]
  7. INSULIN [Concomitant]
  8. ALPRAZOLAM [Concomitant]
  9. FERROUS GLUCONATE [Concomitant]
  10. DOMPERIDONE (DOMPERIDONE) [Concomitant]
  11. PARACETAMOL WITH CODEINE [Concomitant]

REACTIONS (5)
  - PANCYTOPENIA [None]
  - PETECHIAE [None]
  - POLYURIA [None]
  - RENAL FAILURE ACUTE [None]
  - VOMITING [None]
